FAERS Safety Report 6556541-4 (Version None)
Quarter: 2010Q1

REPORT INFORMATION
  Report Type: 
  Country: None (occurrence: None)
  Receive Date: 20100125
  Receipt Date: 20100111
  Transmission Date: 20100710
  Serious: Yes (Hospitalization)
  Sender: FDA-Public Use
  Company Number: SG-JNJFOC-20090806626

PATIENT
  Age: 30 Year
  Sex: Female
  Weight: 39 kg

DRUGS (2)
  1. DECITABINE (DECITABINE) LYOPHILIZED POWDER [Suspect]
     Indication: MYELODYSPLASTIC SYNDROME
     Dosage: 20 MG/M2, INTRAVENOUS; 1ST INFUSION
     Route: 042
     Dates: start: 20090706, end: 20090710
  2. DECITABINE (DECITABINE) LYOPHILIZED POWDER [Suspect]
     Indication: MYELODYSPLASTIC SYNDROME
     Dosage: 20 MG/M2, INTRAVENOUS; 1ST INFUSION
     Route: 042
     Dates: start: 20090817

REACTIONS (11)
  - ACUTE FEBRILE NEUTROPHILIC DERMATOSIS [None]
  - DISEASE PROGRESSION [None]
  - FOLLICULITIS [None]
  - HIDRADENITIS [None]
  - MYELODYSPLASTIC SYNDROME [None]
  - PANCYTOPENIA [None]
  - POST INFLAMMATORY PIGMENTATION CHANGE [None]
  - SKIN INDURATION [None]
  - SKIN LESION [None]
  - SKIN NODULE [None]
  - SKIN PLAQUE [None]
